FAERS Safety Report 4881850-4 (Version None)
Quarter: 2006Q1

REPORT INFORMATION
  Report Type: 
  Country: None (occurrence: None)
  Receive Date: 20060112
  Receipt Date: 20051230
  Transmission Date: 20060701
  Serious: Yes (Other)
  Sender: FDA-Public Use
  Company Number: 2005140175

PATIENT
  Sex: Male
  Weight: 122.4712 kg

DRUGS (7)
  1. DEPO-MEDROL [Suspect]
     Indication: BACK PAIN
     Dosage: 80 MG (80 MG, 1 IN 1 D)
     Dates: start: 20050201
  2. ZOLOFT [Concomitant]
  3. XANAX [Concomitant]
  4. HYDROCODONE BITARTRATE [Concomitant]
  5. ACTOS [Concomitant]
  6. FLONASE [Concomitant]
  7. NAPROXEN [Concomitant]

REACTIONS (8)
  - BENIGN NEOPLASM OF SPINAL CORD [None]
  - DISEASE RECURRENCE [None]
  - EAR DISCOMFORT [None]
  - FALL [None]
  - PAIN IN EXTREMITY [None]
  - RADICULOPATHY [None]
  - RIB FRACTURE [None]
  - SPINAL CORD INJURY CERVICAL [None]
